FAERS Safety Report 6644750-5 (Version None)
Quarter: 2010Q1

REPORT INFORMATION
  Report Type: 
  Country: None (occurrence: None)
  Receive Date: 20100319
  Receipt Date: 20100319
  Transmission Date: 20100710
  Serious: Yes (Hospitalization)
  Sender: FDA-Public Use
  Company Number: None

PATIENT
  Age: 61 Year
  Sex: Male

DRUGS (1)
  1. TIZANDINE [Suspect]
     Indication: MUSCLE SPASMS
     Dosage: 120 MG ONCE PO
     Route: 048
     Dates: start: 20090321, end: 20090321

REACTIONS (5)
  - BRADYCARDIA [None]
  - HYPOTENSION [None]
  - LETHARGY [None]
  - OVERDOSE [None]
  - SEDATION [None]
